FAERS Safety Report 22313833 (Version 1)
Quarter: 2023Q2

REPORT INFORMATION
  Report Type: Spontaneous
  Country: US (occurrence: None)
  Receive Date: 20230510
  Receipt Date: 20230510
  Transmission Date: 20230722
  Serious: Yes (Other)
  Sender: FDA-Public Use
  Company Number: None

PATIENT
  Age: 49 Year
  Sex: Female
  Weight: 67.59 kg

DRUGS (2)
  1. GADOLINIUM [Suspect]
     Active Substance: GADOLINIUM
  2. LEVOTHYROXINE [Concomitant]
     Active Substance: LEVOTHYROXINE

REACTIONS (2)
  - Burning sensation [None]
  - Screaming [None]

NARRATIVE: CASE EVENT DATE: 20191129
